FAERS Safety Report 14692372 (Version 1)
Quarter: 2018Q1

REPORT INFORMATION
  Report Type: Spontaneous
  Country: GB (occurrence: GB)
  Receive Date: 20180329
  Receipt Date: 20180329
  Transmission Date: 20180509
  Serious: Yes (Other)
  Sender: FDA-Public Use
  Company Number: GB-DEXPHARM-20180198

PATIENT
  Age: 23 Year
  Sex: Male

DRUGS (1)
  1. CORSODYL [Suspect]
     Active Substance: CHLORHEXIDINE GLUCONATE
     Indication: GINGIVAL SWELLING
     Route: 048
     Dates: start: 20180206, end: 20180206

REACTIONS (3)
  - Salivary gland enlargement [Not Recovered/Not Resolved]
  - Oral discomfort [Unknown]
  - Pericoronitis [Recovered/Resolved]
